FAERS Safety Report 24906355 (Version 2)
Quarter: 2025Q1

REPORT INFORMATION
  Report Type: Spontaneous
  Country: US (occurrence: US)
  Receive Date: 20250130
  Receipt Date: 20250214
  Transmission Date: 20250408
  Serious: Yes (Hospitalization)
  Sender: SANOFI AVENTIS
  Company Number: US-SA-2025SA029718

PATIENT
  Age: 59 Year
  Sex: Male
  Weight: 136.36 kg

DRUGS (38)
  1. DUPIXENT [Suspect]
     Active Substance: DUPILUMAB
     Indication: Asthma
     Dosage: 300 MG, QOW
     Route: 058
  2. BOTOX [Concomitant]
     Active Substance: ONABOTULINUMTOXINA
  3. SPRAVATO [Concomitant]
     Active Substance: ESKETAMINE
  4. IRBESARTAN [Concomitant]
     Active Substance: IRBESARTAN
  5. DESCOVY [Concomitant]
     Active Substance: EMTRICITABINE\TENOFOVIR ALAFENAMIDE FUMARATE
  6. SUMATRIPTAN SUCCINATE [Concomitant]
     Active Substance: SUMATRIPTAN SUCCINATE
  7. NOVOLOG [Concomitant]
     Active Substance: INSULIN ASPART
  8. GABAPENTIN [Concomitant]
     Active Substance: GABAPENTIN
  9. NURTEC ODT [Concomitant]
     Active Substance: RIMEGEPANT SULFATE
  10. CARVEDILOL [Concomitant]
     Active Substance: CARVEDILOL
  11. FLUTICASONE PROPIONATE [Concomitant]
     Active Substance: FLUTICASONE PROPIONATE
  12. AIRSUPRA [Concomitant]
     Active Substance: ALBUTEROL SULFATE\BUDESONIDE
  13. AJOVY [Concomitant]
     Active Substance: FREMANEZUMAB-VFRM
  14. CAPLYTA [Concomitant]
     Active Substance: LUMATEPERONE
  15. AZELASTINE HYDROCHLORIDE\FLUTICASONE PROPIONATE [Concomitant]
     Active Substance: AZELASTINE HYDROCHLORIDE\FLUTICASONE PROPIONATE
  16. CLONAZEPAM [Concomitant]
     Active Substance: CLONAZEPAM
  17. METFORMIN HYDROCHLORIDE [Concomitant]
     Active Substance: METFORMIN HYDROCHLORIDE
  18. PROTONIX [Concomitant]
     Active Substance: PANTOPRAZOLE SODIUM
  19. TRELEGY ELLIPTA [Concomitant]
     Active Substance: FLUTICASONE FUROATE\UMECLIDINIUM BROMIDE\VILANTEROL TRIFENATATE
  20. METOCLOPRAMIDE HYDROCHLORIDE [Concomitant]
     Active Substance: METOCLOPRAMIDE HYDROCHLORIDE
  21. DORZOLAMIDE HYDROCHLORIDE [Concomitant]
     Active Substance: DORZOLAMIDE HYDROCHLORIDE
  22. NABUMETONE [Concomitant]
     Active Substance: NABUMETONE
  23. TIZANIDINE HYDROCHLORIDE [Concomitant]
     Active Substance: TIZANIDINE HYDROCHLORIDE
  24. ONDANSETRON HYDROCHLORIDE [Concomitant]
     Active Substance: ONDANSETRON HYDROCHLORIDE
  25. DIHYDROERGOTAMINE MESYLATE [Concomitant]
     Active Substance: DIHYDROERGOTAMINE MESYLATE
  26. ATORVASTATIN CALCIUM [Concomitant]
     Active Substance: ATORVASTATIN CALCIUM
  27. JARDIANCE [Concomitant]
     Active Substance: EMPAGLIFLOZIN
  28. TADALAFIL [Concomitant]
     Active Substance: TADALAFIL
  29. VITAMIN D3 [Concomitant]
     Active Substance: CHOLECALCIFEROL
  30. DOXYCYCLINE HYCLATE [Concomitant]
     Active Substance: DOXYCYCLINE HYCLATE
  31. DRONABINOL [Concomitant]
     Active Substance: DRONABINOL
  32. REYVOW [Concomitant]
     Active Substance: LASMIDITAN
  33. SEMGLEE [Concomitant]
  34. VASCEPA [Concomitant]
     Active Substance: ICOSAPENT ETHYL
  35. CREON [Concomitant]
     Active Substance: PANCRELIPASE AMYLASE\PANCRELIPASE LIPASE\PANCRELIPASE PROTEASE
  36. DIPHENHYDRAMINE HYDROCHLORIDE [Concomitant]
     Active Substance: DIPHENHYDRAMINE HYDROCHLORIDE
  37. EPINEPHRINE [Concomitant]
     Active Substance: EPINEPHRINE
  38. ACETAMINOPHEN [Concomitant]
     Active Substance: ACETAMINOPHEN

REACTIONS (1)
  - Migraine [Unknown]
